FAERS Safety Report 5689276-0 (Version None)
Quarter: 2008Q1

REPORT INFORMATION
  Report Type: 
  Country: None (occurrence: None)
  Receive Date: 20080331
  Receipt Date: 20080318
  Transmission Date: 20080703
  Serious: Yes (Hospitalization)
  Sender: FDA-Public Use
  Company Number: US-ELI_LILLY_AND_COMPANY-US200802003092

PATIENT
  Sex: Female

DRUGS (6)
  1. FORTEO [Suspect]
     Indication: OSTEOPOROSIS
     Dosage: 20 UG, DAILY (1/D)
     Route: 058
     Dates: start: 20060316, end: 20070701
  2. CALCIUM [Concomitant]
  3. VITAMIN D [Concomitant]
  4. CORTICOSTEROIDS [Concomitant]
  5. COUMADIN [Concomitant]
  6. PREDNISONE [Concomitant]
     Dosage: 15 MG, EACH MORNING

REACTIONS (10)
  - AGITATION [None]
  - BONE DENSITY DECREASED [None]
  - DRUG INEFFECTIVE [None]
  - FALL [None]
  - IMPAIRED HEALING [None]
  - RIB FRACTURE [None]
  - SYSTEMIC LUPUS ERYTHEMATOSUS [None]
  - TIBIA FRACTURE [None]
  - UPPER LIMB FRACTURE [None]
  - WALKING AID USER [None]
